FAERS Safety Report 7903378-7 (Version None)
Quarter: 2011Q4

REPORT INFORMATION
  Report Type: 
  Country: None (occurrence: None)
  Receive Date: 20111109
  Receipt Date: 20111106
  Transmission Date: 20120403
  Serious: No
  Sender: FDA-Public Use
  Company Number: US-PFIZER INC-2011271532

PATIENT
  Age: 13 Year
  Sex: Female
  Weight: 61.224 kg

DRUGS (1)
  1. ADVIL COLD AND SINUS [Suspect]
     Dosage: UNK

REACTIONS (1)
  - LIP SWELLING [None]
